FAERS Safety Report 8487418-5 (Version None)
Quarter: 2012Q3

REPORT INFORMATION
  Report Type: 
  Country: None (occurrence: None)
  Receive Date: 20120705
  Receipt Date: 20120629
  Transmission Date: 20120928
  Serious: Yes (Death, Other)
  Sender: FDA-Public Use
  Company Number: RS-ELI_LILLY_AND_COMPANY-RS201207000682

PATIENT
  Sex: Female
  Weight: 80 kg

DRUGS (6)
  1. GEMZAR [Suspect]
     Indication: ADENOCARCINOMA
     Dosage: 1 G, OTHER
     Route: 042
     Dates: start: 20120228, end: 20120508
  2. CAVINTON [Concomitant]
     Indication: HYPERTENSION
  3. LASIX [Concomitant]
     Indication: HYPERTENSION
     Dosage: UNK
  4. CISPLATIN [Concomitant]
     Indication: ADENOCARCINOMA
     Dosage: 50 MG, OTHER
  5. PRILENAP [Concomitant]
     Indication: HYPERTENSION
     Dosage: 20 MG, BID
  6. GLUFORMIN [Concomitant]
     Indication: BLOOD GLUCOSE INCREASED

REACTIONS (2)
  - TOXIC EPIDERMAL NECROLYSIS [None]
  - THROMBOCYTOPENIA [None]
